FAERS Safety Report 10513724 (Version 3)
Quarter: 2014Q4

REPORT INFORMATION
  Report Type: Report from Study
  Country: CA (occurrence: CA)
  Receive Date: 20141013
  Receipt Date: 20141024
  Transmission Date: 20150528
  Serious: Yes (Hospitalization, Other)
  Sender: FDA-Public Use
  Company Number: CA-AMGEN-CANSP2014034577

PATIENT
  Age: 74 Year
  Sex: Female

DRUGS (16)
  1. FOLIC ACID. [Concomitant]
     Active Substance: FOLIC ACID
     Dosage: 1 MG, ONCE DAILY
     Route: 048
  2. PANTOPRAZOLE [Concomitant]
     Active Substance: PANTOPRAZOLE SODIUM
     Dosage: 40 MG, ONCE DAILY
     Route: 048
  3. PREDNISONE. [Suspect]
     Active Substance: PREDNISONE
     Indication: PAIN
     Dosage: 5 MG, ONCE DAILY
     Route: 048
  4. METFORMIN [Concomitant]
     Active Substance: METFORMIN HYDROCHLORIDE
     Indication: DIABETES MELLITUS
     Dosage: 750 MG, BID (500 MG 1-1/12 TABLET TWICE DAILY)
     Route: 048
  5. GLICLAZIDE [Concomitant]
     Active Substance: GLICLAZIDE
     Dosage: 30 MG, ONE TABLET DAILY
     Route: 048
  6. APO-K [Concomitant]
     Active Substance: POTASSIUM CHLORIDE
     Dosage: 600 MG, ONCE DAILY
     Route: 048
  7. BUPRENORPHINE [Concomitant]
     Active Substance: BUPRENORPHINE
     Dosage: 5 MCG PATCH EVERY WEEK
  8. FERROUS FUMARATE [Concomitant]
     Active Substance: FERROUS FUMARATE
     Dosage: 300 MG, Q12H
     Route: 048
  9. RISEDRONATE [Concomitant]
     Active Substance: RISEDRONATE SODIUM
     Dosage: 35 MG, QONE TABLET WEEKLY
  10. FERROUS GLUCONATE [Concomitant]
     Active Substance: FERROUS GLUCONATE
     Dosage: 300 MG, BID
     Route: 048
  11. BISOPROLOL [Concomitant]
     Active Substance: BISOPROLOL
     Indication: BLOOD PRESSURE
     Dosage: 1/2 TABLET ONCE DAILY
     Route: 048
  12. ENBREL [Suspect]
     Active Substance: ETANERCEPT
     Indication: PSORIATIC ARTHROPATHY
     Dosage: 50 MG, QWK
     Route: 058
     Dates: start: 20140401
  13. GLUCOPHAGE [Concomitant]
     Active Substance: METFORMIN HYDROCHLORIDE
     Indication: DIABETES MELLITUS
     Dosage: 30 MG, QD
     Route: 048
  14. CALTRATE                           /00944201/ [Concomitant]
     Dosage: UNK
  15. CRESTOR [Concomitant]
     Active Substance: ROSUVASTATIN CALCIUM
     Indication: BLOOD CHOLESTEROL
     Dosage: 10 MG, ONCE DAILY
     Route: 048
  16. LASIX [Concomitant]
     Active Substance: FUROSEMIDE
     Dosage: 40 MG, DAILY

REACTIONS (21)
  - Cerebral atrophy [Unknown]
  - Hypokalaemic syndrome [Unknown]
  - Asthenia [Unknown]
  - Sinus disorder [Unknown]
  - Vomiting [Recovered/Resolved]
  - Anaemia [Recovering/Resolving]
  - Tooth infection [Recovered/Resolved]
  - Gingival pain [Not Recovered/Not Resolved]
  - Syncope [Unknown]
  - Renal disorder [Unknown]
  - Pyrexia [Unknown]
  - Oral pain [Unknown]
  - Chills [Unknown]
  - Nausea [Unknown]
  - Urinary tract infection [Unknown]
  - Somnolence [Unknown]
  - Feeling abnormal [Unknown]
  - Inflammation [Unknown]
  - Ventricular hypertrophy [Unknown]
  - Sepsis [Unknown]
  - Blood glucose decreased [Unknown]

NARRATIVE: CASE EVENT DATE: 2014
